FAERS Safety Report 9200788 (Version 1)
Quarter: 2013Q1

REPORT INFORMATION
  Report Type: Spontaneous
  Country: IT (occurrence: None)
  Receive Date: 20130327
  Receipt Date: 20130327
  Transmission Date: 20140127
  Serious: Yes (Hospitalization)
  Sender: FDA-Public Use
  Company Number: 2013-05202

PATIENT
  Age: 64 Year
  Sex: Female

DRUGS (2)
  1. LORAZEPAM (LORAZEPAM) [Suspect]
     Indication: PRODUCT USED FOR UNKNOWN INDICATION
     Dosage: OVERDOSE WITH 6 DOSAGE FORM ORAL TOTAL.
     Route: 048
     Dates: start: 20130124, end: 20130124
  2. ALPRAZOLAM (ALPRAZOLAM) [Suspect]
     Indication: PRODUCT USED FOR UNKNOWN INDICATION
     Dosage: OVERDOSE WITH 4 DOSAGE FORM TOTAL, ORAL
     Route: 048
     Dates: start: 20130124, end: 20130124

REACTIONS (5)
  - Suicide attempt [None]
  - Drug abuse [None]
  - Intentional drug misuse [None]
  - Suicidal ideation [None]
  - Overdose [None]
